FAERS Safety Report 18949123 (Version 2)
Quarter: 2021Q4

REPORT INFORMATION
  Report Type: Spontaneous
  Country: US (occurrence: None)
  Receive Date: 20210227
  Receipt Date: 20211104
  Transmission Date: 20220303
  Serious: Yes (Hospitalization)
  Sender: FDA-Public Use
  Company Number: US-ROCHE-2628538

PATIENT
  Sex: Female
  Weight: 97.610 kg

DRUGS (14)
  1. XOLAIR [Suspect]
     Active Substance: OMALIZUMAB
     Indication: Idiopathic urticaria
     Dosage: 150MG/ML
     Route: 058
     Dates: start: 20200313, end: 20200424
  2. XOLAIR [Suspect]
     Active Substance: OMALIZUMAB
  3. XOLAIR [Suspect]
     Active Substance: OMALIZUMAB
  4. XOLAIR [Suspect]
     Active Substance: OMALIZUMAB
     Indication: Chronic spontaneous urticaria
     Dosage: TWO INJECTIONS PER DOSE
     Route: 058
     Dates: start: 201407, end: 20200424
  5. XOLAIR [Suspect]
     Active Substance: OMALIZUMAB
  6. XOLAIR [Suspect]
     Active Substance: OMALIZUMAB
  7. GANIRELIX [Concomitant]
     Active Substance: GANIRELIX
  8. AVIANE [Concomitant]
     Active Substance: ETHINYL ESTRADIOL\LEVONORGESTREL
  9. EPIPEN [Concomitant]
     Active Substance: EPINEPHRINE
     Indication: Hypersensitivity
     Dosage: 0.3 MG PER 0.3 ML AS NEEDED
  10. FERROUS SULFATE [Concomitant]
     Active Substance: FERROUS SULFATE
  11. HYDROXYZINE [Concomitant]
     Active Substance: HYDROXYZINE HYDROCHLORIDE
     Indication: Urticaria
     Dosage: 1 TO 2 TABLETS AS NEEDED PER DAY
     Route: 048
  12. LEVOTHYROXINE [Concomitant]
     Active Substance: LEVOTHYROXINE
     Route: 048
  13. LEXAPRO [Concomitant]
     Active Substance: ESCITALOPRAM OXALATE
     Route: 048
  14. ZYRTEC (UNITED STATES) [Concomitant]
     Indication: Urticaria
     Route: 048
     Dates: start: 2018

REACTIONS (3)
  - Maternal exposure timing unspecified [Unknown]
  - Pre-eclampsia [Recovered/Resolved]
  - Premature delivery [Unknown]
